FAERS Safety Report 9283464 (Version 1)
Quarter: 2013Q2

REPORT INFORMATION
  Report Type: Spontaneous
  Country: US (occurrence: US)
  Receive Date: 20130510
  Receipt Date: 20130510
  Transmission Date: 20140414
  Serious: No
  Sender: FDA-Public Use
  Company Number: US-GLAXOSMITHKLINE-A1010788A

PATIENT
  Age: 69 Year
  Sex: Male
  Weight: 70 kg

DRUGS (9)
  1. TYKERB [Suspect]
     Indication: BREAST CANCER
     Dosage: 4TAB PER DAY
     Route: 048
     Dates: start: 20121230, end: 20130205
  2. FEMARA [Concomitant]
  3. VITAMIN C [Concomitant]
  4. CALCIUM SUPPLEMENT [Concomitant]
  5. MULTIVITAMIN [Concomitant]
  6. SPIRIVA [Concomitant]
  7. COMBIVENT [Concomitant]
  8. LISINOPRIL [Concomitant]
  9. VITAMIN D [Concomitant]

REACTIONS (4)
  - Diarrhoea [Recovering/Resolving]
  - Dry skin [Recovering/Resolving]
  - Hyperaesthesia [Recovering/Resolving]
  - Cardiac output decreased [Unknown]
